FAERS Safety Report 21783006 (Version 2)
Quarter: 2023Q1

REPORT INFORMATION
  Report Type: Spontaneous
  Country: GB (occurrence: GB)
  Receive Date: 20221227
  Receipt Date: 20230103
  Transmission Date: 20230417
  Serious: Yes (Hospitalization)
  Sender: FDA-Public Use
  Company Number: GB-MYLANLABS-2022M1144407

PATIENT
  Age: 11 Year
  Sex: Male

DRUGS (4)
  1. ZOLEDRONIC ACID [Suspect]
     Active Substance: ZOLEDRONIC ACID
     Indication: Osteoporosis
     Dosage: 0.05 MILLIGRAM/KILOGRAM (45 MINUTES)
     Route: 042
  2. ZOLEDRONIC ACID [Suspect]
     Active Substance: ZOLEDRONIC ACID
     Indication: Duchenne muscular dystrophy
  3. ONDANSETRON [Concomitant]
     Active Substance: ONDANSETRON
     Indication: Prophylaxis
     Dosage: UNK
     Route: 065
  4. ACETAMINOPHEN [Concomitant]
     Active Substance: ACETAMINOPHEN
     Indication: Prophylaxis
     Dosage: UNK
     Route: 065

REACTIONS (8)
  - Cardiac ventricular thrombosis [Recovered/Resolved]
  - Hypocalcaemia [Unknown]
  - Tachycardia [Not Recovered/Not Resolved]
  - Tachypnoea [Unknown]
  - Hypercoagulation [Unknown]
  - Acute phase reaction [Unknown]
  - Electrolyte imbalance [Recovering/Resolving]
  - Hypotension [Unknown]
